FAERS Safety Report 7249099-8 (Version None)
Quarter: 2011Q1

REPORT INFORMATION
  Report Type: 
  Country: None (occurrence: None)
  Receive Date: 20110128
  Receipt Date: 20101026
  Transmission Date: 20110831
  Serious: Yes (Other)
  Sender: FDA-Public Use
  Company Number: US-BAYER-201024701NA

PATIENT
  Sex: Female
  Weight: 68.182 kg

DRUGS (14)
  1. LIPITOR [Concomitant]
     Indication: PRODUCT USED FOR UNKNOWN INDICATION
     Route: 048
     Dates: start: 20081001, end: 20091101
  2. OCELLA [Suspect]
     Indication: DYSPNOEA
     Route: 048
  3. TOPROL-XL [Concomitant]
     Indication: BLOOD PRESSURE MANAGEMENT
     Route: 048
     Dates: start: 20081001, end: 20090701
  4. SYNTHROID [Concomitant]
     Indication: PRODUCT USED FOR UNKNOWN INDICATION
     Route: 065
  5. LISINOPRIL [Concomitant]
     Indication: PRODUCT USED FOR UNKNOWN INDICATION
     Route: 065
     Dates: start: 20081001, end: 20100101
  6. PREMARIN [Concomitant]
     Indication: HORMONE REPLACEMENT THERAPY
     Route: 048
     Dates: start: 20090301, end: 20091101
  7. YASMIN [Suspect]
     Indication: DYSPNOEA
     Route: 048
     Dates: start: 20040101, end: 20090101
  8. ADVAIR [Concomitant]
     Indication: DYSPNOEA
     Route: 065
     Dates: start: 20090401, end: 20100101
  9. SINGULAIR [Concomitant]
     Indication: DYSPNOEA
     Route: 065
     Dates: start: 20081001, end: 20100101
  10. METOPROLOL SUCCINATE [Concomitant]
     Indication: BLOOD PRESSURE MANAGEMENT
     Route: 048
     Dates: start: 20090101, end: 20090701
  11. PROVERA [Concomitant]
     Indication: ENDOMETRIOSIS
     Route: 065
     Dates: start: 20090501, end: 20090601
  12. YAZ [Suspect]
     Indication: BLOOD PRESSURE MANAGEMENT
     Route: 048
  13. MEDROXYPROGESTERONE [Concomitant]
     Indication: ENDOMETRIOSIS
     Route: 048
     Dates: start: 20090301, end: 20091201
  14. IBUPROFEN [Concomitant]
     Indication: PAIN
     Dosage: 1000 MG (DAILY DOSE), TID, UNKNOWN
     Route: 065
     Dates: start: 20090501

REACTIONS (3)
  - CHOLELITHIASIS [None]
  - CHOLECYSTITIS ACUTE [None]
  - ABDOMINAL PAIN [None]
